FAERS Safety Report 17803753 (Version 1)
Quarter: 2020Q2

REPORT INFORMATION
  Report Type: Report from Study
  Country: IT (occurrence: IT)
  Receive Date: 20200519
  Receipt Date: 20200519
  Transmission Date: 20200714
  Serious: Yes (Other)
  Sender: FDA-Public Use
  Company Number: IT-TEVA-2020-IT-1235906

PATIENT
  Age: 79 Year
  Sex: Male

DRUGS (3)
  1. FLUOROURACILE TEVA 250 MG/5 ML SOLUZIONE PER INFUSIONE [Suspect]
     Active Substance: FLUOROURACIL
     Indication: COLON CANCER
  2. CALCIO LEVOFOLINATO TEVA [Concomitant]
     Active Substance: LEVOLEUCOVORIN CALCIUM
     Indication: COLON CANCER
  3. ONDANSETRONE MYLAN GENERICS [Concomitant]
     Indication: COLON CANCER

REACTIONS (6)
  - Nausea [Unknown]
  - Pruritus [Unknown]
  - Leukopenia [Unknown]
  - Dry mouth [Unknown]
  - Dysgeusia [Unknown]
  - Eye pruritus [Unknown]

NARRATIVE: CASE EVENT DATE: 20200103
